FAERS Safety Report 6535392-0 (Version None)
Quarter: 2010Q1

REPORT INFORMATION
  Report Type: 
  Country: None (occurrence: None)
  Receive Date: 20100113
  Receipt Date: 20100104
  Transmission Date: 20100710
  Serious: Yes (Hospitalization, Other)
  Sender: FDA-Public Use
  Company Number: GB-ASTRAZENECA-2009SE28942

PATIENT
  Age: 36 Year
  Sex: Female
  Weight: 95.3 kg

DRUGS (3)
  1. TAMOXIFEN CITRATE [Suspect]
     Route: 048
  2. ZOLADEX [Suspect]
     Indication: BREAST CANCER
     Route: 058
     Dates: start: 20091001
  3. ZOLADEX [Suspect]
     Indication: BREAST CANCER METASTATIC
     Route: 058
     Dates: start: 20091001

REACTIONS (2)
  - MULTIPLE SCLEROSIS [None]
  - MULTIPLE SCLEROSIS RELAPSE [None]
